FAERS Safety Report 18101409 (Version 1)
Quarter: 2020Q3

REPORT INFORMATION
  Report Type: Spontaneous
  Country: IE (occurrence: IE)
  Receive Date: 20200801
  Receipt Date: 20200801
  Transmission Date: 20201103
  Serious: Yes (Other)
  Sender: FDA-Public Use
  Company Number: NVSC2020IE214998

PATIENT
  Age: 75 Year
  Sex: Male
  Weight: 90 kg

DRUGS (3)
  1. TAMNEXYL [Suspect]
     Active Substance: TAMSULOSIN HYDROCHLORIDE
     Indication: BENIGN PROSTATIC HYPERPLASIA
     Dosage: 400 UG
     Route: 048
  2. TAMSU 400 MICROGRAMS MODIFIED?RELEASE CAPSULES, HARD [Suspect]
     Active Substance: TAMSULOSIN HYDROCHLORIDE
     Indication: PRODUCT USED FOR UNKNOWN INDICATION
     Dosage: 400 UG
     Route: 048
  3. ISTOLDE [Concomitant]
     Indication: HYPERTENSION
     Dosage: 10 MG, QD
     Route: 048
     Dates: start: 20170512

REACTIONS (1)
  - Testicular swelling [Not Recovered/Not Resolved]

NARRATIVE: CASE EVENT DATE: 20200512
